FAERS Safety Report 4992223-8 (Version None)
Quarter: 2006Q2

REPORT INFORMATION
  Report Type: 
  Country: None (occurrence: None)
  Receive Date: 20060502
  Receipt Date: 20060418
  Transmission Date: 20061013
  Serious: Yes (Hospitalization)
  Sender: FDA-Public Use
  Company Number: 2006S1003582

PATIENT
  Age: 48 Year
  Sex: Male
  Weight: 103.4201 kg

DRUGS (12)
  1. FENTANYL [Suspect]
     Indication: BREAKTHROUGH PAIN
     Dosage: 800 UG; PRN, BUCCA
     Route: 002
     Dates: start: 20051118, end: 20060310
  2. FENTANYL [Suspect]
     Indication: BREAKTHROUGH PAIN
     Dosage: 800 UG; PRN; BUCCA
     Route: 002
     Dates: start: 20060316
  3. HYDROMORPHONE (8 MG) [Suspect]
     Indication: PAIN
     Dosage: 8 MG; TID; ORAL
     Route: 048
     Dates: start: 20040101
  4. FENTANYL TRANSDERMAL SYSTEM [Suspect]
     Indication: PAIN
     Dosage: 50 UG/HR; TRANS
  5. ENALAPRIL MALEATE [Concomitant]
  6. TRAZODONE HCL [Concomitant]
  7. CARVEDILOL [Concomitant]
  8. BUPROPION HYDROCHLORIDE [Concomitant]
  9. CYCLOBENZAPRINE HCL [Concomitant]
  10. LACTULOSE [Concomitant]
  11. ENOXAPARIN SODIUM [Concomitant]
  12. DIPHENHYDRAMINE HCL [Concomitant]

REACTIONS (11)
  - CHEST PAIN [None]
  - CONSTIPATION [None]
  - DRUG INEFFECTIVE [None]
  - EATING DISORDER [None]
  - ELECTROCARDIOGRAM ST-T CHANGE [None]
  - ILEUS [None]
  - KNEE ARTHROPLASTY [None]
  - NAUSEA [None]
  - PAIN [None]
  - SINUS TACHYCARDIA [None]
  - SMALL INTESTINAL OBSTRUCTION [None]
